FAERS Safety Report 19081112 (Version 1)
Quarter: 2021Q1

REPORT INFORMATION
  Report Type: Spontaneous
  Country: US (occurrence: US)
  Receive Date: 20210331
  Receipt Date: 20210331
  Transmission Date: 20210420
  Serious: Yes (Death)
  Sender: FDA-Public Use
  Company Number: US-OPTINOSE US, INC-2021OPT000122

PATIENT
  Age: 56 Year
  Sex: Male

DRUGS (1)
  1. XHANCE [Suspect]
     Active Substance: FLUTICASONE PROPIONATE
     Indication: CHRONIC SINUSITIS
     Route: 045

REACTIONS (2)
  - COVID-19 [Fatal]
  - Product use in unapproved indication [Unknown]
